FAERS Safety Report 6854927-1 (Version None)
Quarter: 2010Q3

REPORT INFORMATION
  Report Type: 
  Country: None (occurrence: None)
  Receive Date: 20100717
  Receipt Date: 20080321
  Transmission Date: 20110219
  Serious: No
  Sender: FDA-Public Use
  Company Number: US-PFIZER INC-2007101462

PATIENT
  Sex: Female

DRUGS (2)
  1. CHANTIX [Suspect]
     Dates: start: 20071101
  2. ALL OTHER THERAPEUTIC PRODUCTS [Concomitant]
     Indication: PAIN

REACTIONS (2)
  - DRUG INEFFECTIVE [None]
  - MALAISE [None]
